FAERS Safety Report 9279197 (Version 1)
Quarter: 2013Q2

REPORT INFORMATION
  Report Type: Report from Study
  Country: US (occurrence: US)
  Receive Date: 20130508
  Receipt Date: 20130508
  Transmission Date: 20140414
  Serious: Yes (Other)
  Sender: FDA-Public Use
  Company Number: US-ROCHE-1193301

PATIENT
  Sex: Female

DRUGS (1)
  1. XOLAIR [Suspect]
     Indication: PRODUCT USED FOR UNKNOWN INDICATION
     Route: 058

REACTIONS (11)
  - Asthenia [Unknown]
  - Dyspnoea [Unknown]
  - Somnolence [Unknown]
  - Wheezing [Unknown]
  - Sinus headache [Unknown]
  - Pain [Unknown]
  - Gastrooesophageal reflux disease [Unknown]
  - Fatigue [Unknown]
  - Flushing [Unknown]
  - Swollen tongue [Unknown]
  - Abdominal discomfort [Unknown]
